FAERS Safety Report 7270752-4 (Version None)
Quarter: 2011Q1

REPORT INFORMATION
  Report Type: 
  Country: None (occurrence: None)
  Receive Date: 20110202
  Receipt Date: 20110124
  Transmission Date: 20110831
  Serious: Yes (Hospitalization, Other)
  Sender: FDA-Public Use
  Company Number: US-ASTRAZENECA-2011SE01696

PATIENT
  Age: 51 Year
  Sex: Female

DRUGS (1)
  1. NEXIUM [Suspect]
     Route: 048

REACTIONS (9)
  - GASTROINTESTINAL DISORDER [None]
  - HELICOBACTER INFECTION [None]
  - MALAISE [None]
  - GASTRIC DISORDER [None]
  - GAIT DISTURBANCE [None]
  - HOSPITALISATION [None]
  - MUSCULOSKELETAL DISCOMFORT [None]
  - BLADDER CANCER [None]
  - GENERAL PHYSICAL HEALTH DETERIORATION [None]
